FAERS Safety Report 5554939-4 (Version None)
Quarter: 2007Q4

REPORT INFORMATION
  Report Type: 
  Country: None (occurrence: None)
  Receive Date: 20071213
  Receipt Date: 20071203
  Transmission Date: 20080405
  Serious: Yes (Other)
  Sender: FDA-Public Use
  Company Number: FR-ASTRAZENECA-2007CG01626

PATIENT
  Age: 20502 Day
  Sex: Female
  Weight: 56 kg

DRUGS (2)
  1. ZOMIGORO [Suspect]
     Indication: MIGRAINE
     Route: 048
     Dates: start: 20050101, end: 20071010
  2. ZOMIGORO [Suspect]
     Dosage: INTAKE OF ABOUT TWENTY TABLETS
     Route: 048
     Dates: start: 20071010, end: 20071017

REACTIONS (3)
  - DRUG INEFFECTIVE [None]
  - HEPATITIS [None]
  - OVERDOSE [None]
